FAERS Safety Report 7061409-3 (Version None)
Quarter: 2010Q4

REPORT INFORMATION
  Report Type: 
  Country: None (occurrence: None)
  Receive Date: 20101026
  Receipt Date: 20101012
  Transmission Date: 20110411
  Serious: Yes (Other)
  Sender: FDA-Public Use
  Company Number: PHHY2010JP66967

PATIENT
  Age: 7 Year
  Sex: Female

DRUGS (6)
  1. CARBAMAZEPINE [Suspect]
     Indication: EPILEPSY
     Route: 048
  2. CARBAMAZEPINE [Suspect]
     Dosage: 260 MG/DAY
     Route: 048
  3. CARBAMAZEPINE [Suspect]
     Dosage: 400 MG PER DAY
     Route: 048
  4. CLOBAZAM [Concomitant]
     Indication: EPILEPSY
     Dosage: 20 MG DAILY
  5. LAMOTRIGINE [Concomitant]
     Indication: EPILEPSY
     Dosage: 15 MG PER DAY
  6. VALPROIC ACID [Concomitant]
     Dosage: 400 MG/DAY

REACTIONS (8)
  - COGNITIVE DISORDER [None]
  - DEPRESSED LEVEL OF CONSCIOUSNESS [None]
  - DRUG INEFFECTIVE [None]
  - ELECTROENCEPHALOGRAM ABNORMAL [None]
  - EPILEPSY [None]
  - PARTIAL SEIZURES [None]
  - SALIVARY HYPERSECRETION [None]
  - STATUS EPILEPTICUS [None]
